FAERS Safety Report 7540112-7 (Version None)
Quarter: 2011Q2

REPORT INFORMATION
  Report Type: 
  Country: None (occurrence: None)
  Receive Date: 20110610
  Receipt Date: 20110606
  Transmission Date: 20111010
  Serious: Yes (Life-Threatening)
  Sender: FDA-Public Use
  Company Number: CH-ASTRAZENECA-2011SE34876

PATIENT
  Age: 88 Year
  Sex: Female

DRUGS (15)
  1. LAMICTAL [Suspect]
     Route: 048
     Dates: start: 20110318, end: 20110318
  2. LAMICTAL [Suspect]
     Route: 048
     Dates: start: 20110308, end: 20110317
  3. LAMICTAL [Suspect]
     Route: 048
     Dates: start: 20110307, end: 20110307
  4. ZOLPIDEM [Suspect]
     Route: 048
     Dates: start: 20070101, end: 20110306
  5. BISOPROLOL FUMARATE [Suspect]
     Route: 048
     Dates: start: 20110201
  6. LEVOTHYROXINE SODIUM [Concomitant]
     Route: 048
     Dates: start: 20110303
  7. CALCIUM CARBONATE [Concomitant]
     Route: 048
     Dates: start: 20070101
  8. TORSEMIDE [Suspect]
     Route: 048
     Dates: start: 20070101, end: 20110325
  9. VITALUS PLUS [Concomitant]
     Route: 048
  10. SEROQUEL [Suspect]
     Route: 048
     Dates: start: 20070101, end: 20110303
  11. SEROQUEL [Suspect]
     Route: 048
     Dates: start: 20110304, end: 20110307
  12. SEROQUEL [Suspect]
     Route: 048
     Dates: start: 20110308
  13. SALVIA [Concomitant]
     Dates: start: 20110303
  14. LAMICTAL [Suspect]
     Route: 048
     Dates: start: 20110303, end: 20110303
  15. LAMICTAL [Suspect]
     Route: 048
     Dates: start: 20110304, end: 20110306

REACTIONS (1)
  - FALL [None]
